FAERS Safety Report 4359431-0 (Version None)
Quarter: 2004Q2

REPORT INFORMATION
  Report Type: 
  Country: None (occurrence: None)
  Receive Date: 20040512
  Receipt Date: 20040422
  Transmission Date: 20050107
  Serious: Yes (Other)
  Sender: FDA-Public Use
  Company Number: GBS040414820

PATIENT
  Age: 29 Year
  Sex: Female
  Weight: 67 kg

DRUGS (2)
  1. PROZAC [Suspect]
     Indication: DEPRESSION
     Dosage: 20 MG
     Dates: start: 20040309, end: 20040327
  2. LOGYNON [Concomitant]

REACTIONS (2)
  - SPEECH DISORDER [None]
  - TONGUE SPASM [None]
